FAERS Safety Report 5251987-9 (Version None)
Quarter: 2007Q1

REPORT INFORMATION
  Report Type: 
  Country: None (occurrence: None)
  Receive Date: 20070226
  Receipt Date: 20060620
  Transmission Date: 20070707
  Serious: Yes (Life-Threatening, Hospitalization)
  Sender: FDA-Public Use
  Company Number: DSA_29402_2007

PATIENT
  Age: 81 Year
  Sex: Female

DRUGS (8)
  1. HERBESSER [Suspect]
     Indication: ANGINA PECTORIS
     Dosage: 30 MG TID PO
     Route: 048
     Dates: start: 19980703, end: 20051225
  2. HERBESSER [Suspect]
     Indication: MYOCARDIAL INFARCTION
     Dosage: 30 MG TID PO
     Route: 048
     Dates: start: 19980703, end: 20051225
  3. DIGOSIN [Suspect]
     Indication: CARDIAC FAILURE
     Dosage: 0.125 MG Q DAY PO
     Route: 048
     Dates: start: 19980703, end: 20051225
  4. BETRILOL [Suspect]
     Indication: PROPHYLAXIS
     Dosage: 3 MG TID PO
     Route: 048
     Dates: start: 19980703, end: 20051225
  5. LASIX [Concomitant]
  6. RENIVACE [Concomitant]
  7. SLOW-K [Concomitant]
  8. GRAMALIL [Concomitant]

REACTIONS (7)
  - CARDIO-RESPIRATORY ARREST [None]
  - DEMENTIA [None]
  - DISORIENTATION [None]
  - DRUG INTERACTION [None]
  - FALL [None]
  - HEART RATE DECREASED [None]
  - MEMORY IMPAIRMENT [None]
